FAERS Safety Report 4605753-5 (Version None)
Quarter: 2005Q1

REPORT INFORMATION
  Report Type: 
  Country: None (occurrence: None)
  Receive Date: 20050214
  Receipt Date: 20041025
  Transmission Date: 20050727
  Serious: No
  Sender: FDA-Public Use
  Company Number: USA041082201

PATIENT
  Age: 69 Year
  Sex: Male
  Weight: 96 kg

DRUGS (8)
  1. CIALIS [Suspect]
     Dosage: 10 MG AS NEEDED
     Dates: start: 20041023
  2. GEMFIBROZIL [Concomitant]
  3. GLYBURIDE [Concomitant]
  4. FUROSEMIDE [Concomitant]
  5. METFORMIN HCL [Concomitant]
  6. ACTOS [Concomitant]
  7. SYNTHROID [Concomitant]
  8. KLOR-CON [Concomitant]

REACTIONS (1)
  - THERAPEUTIC RESPONSE DECREASED [None]
